FAERS Safety Report 12585352 (Version 1)
Quarter: 2016Q3

REPORT INFORMATION
  Report Type: Report from Study
  Country: BR (occurrence: BR)
  Receive Date: 20160724
  Receipt Date: 20160724
  Transmission Date: 20161109
  Serious: Yes (Other)
  Sender: FDA-Public Use
  Company Number: PHHY2016BR100518

PATIENT
  Age: 28 Year
  Sex: Female

DRUGS (1)
  1. GILENYA [Suspect]
     Active Substance: FINGOLIMOD HYDROCHLORIDE
     Indication: MULTIPLE SCLEROSIS
     Dosage: UNK
     Route: 048

REACTIONS (4)
  - Weight decreased [Unknown]
  - Diplopia [Recovering/Resolving]
  - Multiple sclerosis relapse [Unknown]
  - Fall [Recovering/Resolving]

NARRATIVE: CASE EVENT DATE: 2015
